FAERS Safety Report 9669223 (Version 11)
Quarter: 2014Q4

REPORT INFORMATION
  Report Type: Report from Study
  Country: GB (occurrence: GB)
  Receive Date: 20131105
  Receipt Date: 20141126
  Transmission Date: 20150529
  Serious: Yes (Death, Life-Threatening, Hospitalization, Other)
  Sender: FDA-Public Use
  Company Number: GB-B.I. PHARMACEUTICALS,INC./RIDGEFIELD-2013-BI-31761BI

PATIENT
  Age: 51 Year
  Sex: Male
  Weight: 78 kg

DRUGS (8)
  1. COCODAMOL [Concomitant]
     Active Substance: ACETAMINOPHEN\CODEINE PHOSPHATE
     Indication: DISCOMFORT
  2. LAXIDO [Concomitant]
     Active Substance: POLYETHYLENE GLYCOL 3350\POTASSIUM CHLORIDE\SODIUM BICARBONATE\SODIUM CHLORIDE
     Indication: CONSTIPATION
     Dosage: DOSE PER APPLICATION: II SACHET
     Route: 048
     Dates: start: 20130615
  3. COCODAMOL [Concomitant]
     Active Substance: ACETAMINOPHEN\CODEINE PHOSPHATE
     Indication: ANKYLOSING SPONDYLITIS
     Dosage: DOSE PER APPLICATION AND DAILY DOSE: 120/2000
     Route: 048
     Dates: start: 20121203
  4. BIBW 2992 [Suspect]
     Active Substance: AFATINIB
     Indication: SQUAMOUS CELL CARCINOMA OF HEAD AND NECK
     Dosage: 30 MG
     Route: 048
     Dates: start: 20130618, end: 20131007
  5. FORTIJUICE [Concomitant]
     Indication: NUTRITIONAL SUPPLEMENTATION
     Dosage: DOSE PER APPLICATION AND DAILY DOSE: 2 BOTTLES
     Route: 048
     Dates: start: 20120204
  6. VOLTEROL [Concomitant]
     Indication: ANKYLOSING SPONDYLITIS
     Dosage: 150 MG
     Route: 048
     Dates: start: 20121207
  7. CITALOPRAM [Suspect]
     Active Substance: CITALOPRAM HYDROBROMIDE
     Indication: POST-TRAUMATIC STRESS DISORDER
     Dosage: 20 MG
     Route: 048
     Dates: start: 20130928, end: 20130930
  8. VOLTEROL [Concomitant]
     Indication: BACK PAIN

REACTIONS (6)
  - Oral candidiasis [Recovered/Resolved]
  - Respiratory tract infection [Unknown]
  - Bronchopneumonia [Fatal]
  - Bronchopneumonia [Not Recovered/Not Resolved]
  - Tonsil cancer metastatic [Fatal]
  - Electrocardiogram QT prolonged [Recovered/Resolved]

NARRATIVE: CASE EVENT DATE: 20131007
